FAERS Safety Report 10257491 (Version 1)
Quarter: 2014Q2

REPORT INFORMATION
  Report Type: Spontaneous
  Country: US (occurrence: US)
  Receive Date: 20140625
  Receipt Date: 20140625
  Transmission Date: 20141212
  Serious: No
  Sender: FDA-Public Use
  Company Number: US-GLAXOSMITHKLINE-A1038957A

PATIENT
  Age: 56 Year
  Sex: Female

DRUGS (15)
  1. VERAMYST [Suspect]
     Indication: SINUS DISORDER
     Dosage: 2SPR PER DAY
     Route: 045
  2. GLUCOPHAGE [Concomitant]
  3. OMEPRAZOLE [Concomitant]
  4. METRONIDAZOLE [Concomitant]
     Route: 061
  5. ATACAND [Concomitant]
  6. CARVEDILOL [Concomitant]
  7. BUPROPION [Concomitant]
  8. CYMBALTA [Concomitant]
  9. METANX [Concomitant]
  10. CEREFOLIN WITH NAC [Concomitant]
  11. VIVELLE-DOT [Concomitant]
  12. ESTRACE CREAM [Concomitant]
  13. PROGESTERONE [Concomitant]
  14. ALLEGRA [Concomitant]
  15. VITAMIN SUPPLEMENTS [Concomitant]

REACTIONS (2)
  - Epistaxis [Recovered/Resolved]
  - Product quality issue [Unknown]
